FAERS Safety Report 15339863 (Version 9)
Quarter: 2018Q4

REPORT INFORMATION
  Report Type: Report from Study
  Country: None (occurrence: GB)
  Receive Date: 20180831
  Receipt Date: 20181025
  Transmission Date: 20190204
  Serious: Yes (Hospitalization)
  Sender: FDA-Public Use
  Company Number: GB-ABBVIE-18S-167-2467340-00

PATIENT
  Sex: Male

DRUGS (2)
  1. DUODOPA [Suspect]
     Active Substance: CARBIDOPA\LEVODOPA
     Indication: PARKINSON^S DISEASE
     Dosage: 100ML?ONE CASSETTE DAILY
     Route: 050
  2. DUODOPA [Suspect]
     Active Substance: CARBIDOPA\LEVODOPA
     Dosage: DOSE INCREASE
     Route: 050
     Dates: start: 201808

REACTIONS (9)
  - Hallucination [Unknown]
  - Agitation [Unknown]
  - Fall [Unknown]
  - Urinary tract infection [Unknown]
  - Malaise [Unknown]
  - Lumbar vertebral fracture [Unknown]
  - Device use error [Recovered/Resolved]
  - Product storage error [Unknown]
  - Confusional state [Unknown]

NARRATIVE: CASE EVENT DATE: 2018
